FAERS Safety Report 21738894 (Version 4)
Quarter: 2023Q1

REPORT INFORMATION
  Report Type: Report from Study
  Country: US (occurrence: US)
  Receive Date: 20221216
  Receipt Date: 20230227
  Transmission Date: 20230418
  Serious: No
  Sender: FDA-Public Use
  Company Number: US-002147023-NVSC2022US290245

PATIENT
  Sex: Female

DRUGS (1)
  1. COSENTYX [Suspect]
     Active Substance: SECUKINUMAB
     Indication: Rash
     Dosage: UNK
     Route: 065

REACTIONS (3)
  - Rash [Unknown]
  - Product dose omission issue [Unknown]
  - Drug ineffective for unapproved indication [Unknown]
